FAERS Safety Report 11805612 (Version 1)
Quarter: 2015Q4

REPORT INFORMATION
  Report Type: Spontaneous
  Country: GB (occurrence: GB)
  Receive Date: 20151207
  Receipt Date: 20151207
  Transmission Date: 20160305
  Serious: Yes (Disabling)
  Sender: FDA-Public Use
  Company Number: GB-AUROBINDO-AUR-APL-2015-11027

PATIENT
  Age: 71 Year
  Sex: Male
  Weight: 88.9 kg

DRUGS (7)
  1. GABAPENTIN TABLETS [Suspect]
     Active Substance: GABAPENTIN
     Indication: NEURALGIA
     Dosage: 900 MG, UNK
     Route: 048
     Dates: start: 20151103, end: 20151104
  2. ASPIRIN. [Concomitant]
     Active Substance: ASPIRIN
     Indication: PRODUCT USED FOR UNKNOWN INDICATION
     Route: 065
  3. THYROXINE [Concomitant]
     Active Substance: LEVOTHYROXINE
     Indication: PRODUCT USED FOR UNKNOWN INDICATION
     Route: 065
  4. BETAHISTINE [Concomitant]
     Active Substance: BETAHISTINE
     Indication: PRODUCT USED FOR UNKNOWN INDICATION
     Route: 065
  5. COCODAMOL [Concomitant]
     Active Substance: ACETAMINOPHEN\CODEINE PHOSPHATE
     Indication: PRODUCT USED FOR UNKNOWN INDICATION
     Route: 065
  6. SODIUM [Concomitant]
     Active Substance: SODIUM
     Indication: MUSCLE SPASMS
     Route: 065
  7. INFLUENZA VIRUS [Suspect]
     Active Substance: INFLUENZA VIRUS VACCINE
     Indication: INFLUENZA IMMUNISATION
     Route: 065
     Dates: start: 20151103, end: 20151103

REACTIONS (10)
  - Hyperhidrosis [Recovering/Resolving]
  - Influenza like illness [Recovering/Resolving]
  - Dyspnoea [Recovering/Resolving]
  - Productive cough [Recovering/Resolving]
  - Sneezing [Recovering/Resolving]
  - Nasal congestion [Recovering/Resolving]
  - Abnormal loss of weight [Recovering/Resolving]
  - Myalgia [Recovering/Resolving]
  - Diarrhoea [Recovering/Resolving]
  - Malaise [Recovering/Resolving]

NARRATIVE: CASE EVENT DATE: 20151104
